FAERS Safety Report 4814968-2 (Version None)
Quarter: 2005Q4

REPORT INFORMATION
  Report Type: 
  Country: None (occurrence: None)
  Receive Date: 20051028
  Receipt Date: 20051018
  Transmission Date: 20060501
  Serious: Yes (Death)
  Sender: FDA-Public Use
  Company Number: SE-JNJFOC-20051004579

PATIENT
  Age: 22 Year
  Sex: Female

DRUGS (9)
  1. RISPERDAL [Suspect]
     Indication: AGGRESSION
     Route: 048
  2. HALDOL [Concomitant]
  3. TOPIMAX [Concomitant]
  4. LAMICTAL [Concomitant]
  5. NEURONTIN [Concomitant]
  6. AKINETON [Concomitant]
     Dosage: 2MG TABLET
  7. MALLOROL [Concomitant]
  8. DEPO-PROVERA [Concomitant]
  9. STESOLID [Concomitant]

REACTIONS (4)
  - ASPIRATION [None]
  - CARDIAC ARREST [None]
  - DEATH [None]
  - EPILEPSY [None]
